FAERS Safety Report 10590726 (Version 1)
Quarter: 2014Q4

REPORT INFORMATION
  Report Type: Spontaneous
  Country: US (occurrence: US)
  Receive Date: 20141118
  Receipt Date: 20141118
  Transmission Date: 20150529
  Serious: Yes (Other)
  Sender: FDA-Public Use
  Company Number: US-BRISTOL-MYERS SQUIBB COMPANY-21585245

PATIENT
  Age: 56 Year
  Sex: Male
  Weight: 117.97 kg

DRUGS (40)
  1. BYDUREON [Suspect]
     Active Substance: EXENATIDE
     Route: 058
  2. CRESTOR [Suspect]
     Active Substance: ROSUVASTATIN CALCIUM
     Indication: CARDIAC DISORDER
     Dosage: 1DF=3 TABS AT NIGHT
     Route: 048
  3. PRILOSEC [Suspect]
     Active Substance: OMEPRAZOLE MAGNESIUM
     Dosage: DELAYED RELEASE CAPSULES
     Route: 048
  4. BISACODYL. [Concomitant]
     Active Substance: BISACODYL
  5. NAPROXEN. [Concomitant]
     Active Substance: NAPROXEN
  6. AMLODIPINE BESYLATE. [Concomitant]
     Active Substance: AMLODIPINE BESYLATE
  7. PEG 3350 + ELECTROLYTES [Concomitant]
  8. CHERATUSSIN AC [Concomitant]
     Active Substance: CODEINE PHOSPHATE\GUAIFENESIN
     Indication: COUGH
  9. DIOVAN HCT [Concomitant]
     Active Substance: HYDROCHLOROTHIAZIDE\VALSARTAN
     Indication: HYPERTENSION
  10. PERCOCET [Concomitant]
     Active Substance: ACETAMINOPHEN\OXYCODONE HYDROCHLORIDE
  11. PROMETHAZINE HCL [Concomitant]
     Active Substance: PROMETHAZINE HYDROCHLORIDE
     Indication: NAUSEA
  12. MELOXICAM. [Concomitant]
     Active Substance: MELOXICAM
  13. TOPIRAMATE. [Concomitant]
     Active Substance: TOPIRAMATE
  14. GLUCOPHAGE [Concomitant]
     Active Substance: METFORMIN HYDROCHLORIDE
     Indication: DIABETES MELLITUS
  15. MAGNESIUM CITRATE. [Concomitant]
     Active Substance: MAGNESIUM CITRATE
  16. HUMALOG [Concomitant]
     Active Substance: INSULIN LISPRO
  17. LANTUS [Concomitant]
     Active Substance: INSULIN GLARGINE
  18. PLAVIX [Concomitant]
     Active Substance: CLOPIDOGREL BISULFATE
  19. TRAMADOL [Concomitant]
     Active Substance: TRAMADOL
  20. INSULIN [Concomitant]
     Active Substance: INSULIN NOS
     Indication: DIABETES MELLITUS
  21. TRICOR [Concomitant]
     Active Substance: FENOFIBRATE
     Indication: CARDIAC DISORDER
  22. OPANA ER [Concomitant]
     Active Substance: OXYMORPHONE HYDROCHLORIDE
  23. NAPROXEN. [Concomitant]
     Active Substance: NAPROXEN
  24. ALLOPURINOL. [Concomitant]
     Active Substance: ALLOPURINOL
  25. NITROSTAT [Concomitant]
     Active Substance: NITROGLYCERIN
     Indication: CHEST PAIN
  26. AMBIEN [Concomitant]
     Active Substance: ZOLPIDEM TARTRATE
     Indication: INSOMNIA
  27. LYRICA [Concomitant]
     Active Substance: PREGABALIN
     Indication: HYPERTENSION
  28. FISH OIL [Concomitant]
     Active Substance: FISH OIL
  29. ZITHROMAX [Concomitant]
     Active Substance: AZITHROMYCIN DIHYDRATE
  30. LEVAQUIN [Concomitant]
     Active Substance: LEVOFLOXACIN
  31. NOVOLIN [Concomitant]
     Active Substance: INSULIN HUMAN
  32. NEURONTIN [Concomitant]
     Active Substance: GABAPENTIN
     Indication: NEUROPATHY PERIPHERAL
  33. VOLTAREN [Concomitant]
     Active Substance: DICLOFENAC SODIUM
  34. ASPIRIN. [Concomitant]
     Active Substance: ASPIRIN
  35. METOPROLOL TARTRATE. [Concomitant]
     Active Substance: METOPROLOL TARTRATE
  36. ROBAXIN [Concomitant]
     Active Substance: METHOCARBAMOL
     Indication: MUSCLE SPASMS
  37. LIDOCAINE. [Concomitant]
     Active Substance: LIDOCAINE
  38. PRILOCAINE [Concomitant]
     Active Substance: PRILOCAINE
  39. ZETIA [Concomitant]
     Active Substance: EZETIMIBE
     Indication: HYPERLIPIDAEMIA
  40. FUROSEMIDE. [Concomitant]
     Active Substance: FUROSEMIDE

REACTIONS (1)
  - Coronary artery disease [Unknown]
